FAERS Safety Report 24581627 (Version 1)
Quarter: 2024Q4

REPORT INFORMATION
  Report Type: Spontaneous
  Country: CN (occurrence: CN)
  Receive Date: 20241105
  Receipt Date: 20241105
  Transmission Date: 20250115
  Serious: Yes (Other)
  Sender: NOVARTIS
  Company Number: CN-002147023-NVSC2024CN212563

PATIENT
  Age: 56 Year
  Sex: Female
  Weight: 58 kg

DRUGS (6)
  1. TEGRETOL [Suspect]
     Active Substance: CARBAMAZEPINE
     Indication: Type 2 diabetes mellitus
     Dosage: 0.1 G, BID
     Route: 048
     Dates: start: 20241024, end: 20241025
  2. TEGRETOL [Suspect]
     Active Substance: CARBAMAZEPINE
     Indication: Neuritis
     Dosage: 0.1 G, TID
     Route: 048
     Dates: start: 20241025, end: 20241026
  3. TEGRETOL [Suspect]
     Active Substance: CARBAMAZEPINE
     Indication: Connective tissue disorder
  4. TEGRETOL [Suspect]
     Active Substance: CARBAMAZEPINE
     Indication: Hypoaesthesia
  5. TEGRETOL [Suspect]
     Active Substance: CARBAMAZEPINE
     Indication: Pain in extremity
  6. TEGRETOL [Suspect]
     Active Substance: CARBAMAZEPINE
     Indication: Neuropathy peripheral

REACTIONS (5)
  - Amaurosis [Recovering/Resolving]
  - Dizziness [Recovering/Resolving]
  - Fall [Recovering/Resolving]
  - Musculoskeletal discomfort [Recovering/Resolving]
  - Vertigo [Recovering/Resolving]

NARRATIVE: CASE EVENT DATE: 20241026
